FAERS Safety Report 9379707 (Version 1)
Quarter: 2013Q2

REPORT INFORMATION
  Report Type: Spontaneous
  Country: None (occurrence: None)
  Receive Date: 20130627
  Receipt Date: 20130627
  Transmission Date: 20140414
  Serious: Yes (Other)
  Sender: FDA-Public Use
  Company Number: SAF/SAF/13/0030054

PATIENT
  Age: 11 Year
  Sex: 0

DRUGS (1)
  1. TOPRAZ (MONTELUKAST) [Suspect]
     Indication: ASTHMA

REACTIONS (1)
  - Drug ineffective [None]
